FAERS Safety Report 9783737 (Version 1)
Quarter: 2013Q4

REPORT INFORMATION
  Report Type: Spontaneous
  Country: US (occurrence: None)
  Receive Date: 20131223
  Receipt Date: 20131223
  Transmission Date: 20140711
  Serious: Yes (Other)
  Sender: FDA-Public Use
  Company Number: EUS-2011-00755

PATIENT
  Age: 3 Year
  Sex: 0

DRUGS (2)
  1. ERWINASE (ASPARAGINASE) [Suspect]
     Indication: ACUTE LYMPHOCYTIC LEUKAEMIA
     Dosage: INTRAVENOUS
     Route: 042
     Dates: start: 20101116, end: 20101123
  2. DEXAMETHASONE (DEXAMETHASONE) [Concomitant]

REACTIONS (3)
  - Urticaria [None]
  - Pruritus [None]
  - Throat tightness [None]
